FAERS Safety Report 24451399 (Version 2)
Quarter: 2024Q4

REPORT INFORMATION
  Report Type: Spontaneous
  Country: US (occurrence: US)
  Receive Date: 20241017
  Receipt Date: 20241031
  Transmission Date: 20250114
  Serious: Yes (Life-Threatening, Hospitalization)
  Sender: TEVA
  Company Number: US-TEVA-VS-3253261

PATIENT
  Age: 84 Year
  Sex: Female

DRUGS (2)
  1. AMIODARONE [Interacting]
     Active Substance: AMIODARONE
     Indication: Atrial fibrillation
     Route: 065
  2. MOLNUPIRAVIR [Interacting]
     Active Substance: MOLNUPIRAVIR
     Indication: COVID-19
     Route: 048

REACTIONS (14)
  - Palpitations [Unknown]
  - Acute kidney injury [Unknown]
  - Accidental overdose [Unknown]
  - Atrial fibrillation [Recovering/Resolving]
  - Electrocardiogram QT prolonged [Unknown]
  - Liver injury [Unknown]
  - Bradycardia [Unknown]
  - Vomiting [Unknown]
  - Cardiogenic shock [Recovering/Resolving]
  - Hallucination, visual [Recovered/Resolved]
  - Torsade de pointes [Unknown]
  - Stress cardiomyopathy [Unknown]
  - Drug interaction [Unknown]
  - Nausea [Unknown]
